FAERS Safety Report 23971472 (Version 2)
Quarter: 2024Q3

REPORT INFORMATION
  Report Type: Spontaneous
  Country: US (occurrence: US)
  Receive Date: 20240613
  Receipt Date: 20240923
  Transmission Date: 20241016
  Serious: No
  Sender: TEVA
  Company Number: US-TEVA-VS-3206140

PATIENT
  Age: 35 Year
  Sex: Male

DRUGS (1)
  1. QNASL [Suspect]
     Active Substance: BECLOMETHASONE DIPROPIONATE
     Indication: Product used for unknown indication
     Dosage: 80MCG
     Route: 065

REACTIONS (8)
  - Malaise [Unknown]
  - Pain in extremity [Unknown]
  - Dizziness [Unknown]
  - Chest pain [Unknown]
  - Headache [Unknown]
  - Ear haemorrhage [Unknown]
  - Asthenia [Unknown]
  - Ear infection [Unknown]

NARRATIVE: CASE EVENT DATE: 20240501
